FAERS Safety Report 7951657-X (Version None)
Quarter: 2011Q4

REPORT INFORMATION
  Report Type: 
  Country: None (occurrence: None)
  Receive Date: 20111201
  Receipt Date: 20111123
  Transmission Date: 20120403
  Serious: Yes (Other)
  Sender: FDA-Public Use
  Company Number: JP-ROXANE LABORATORIES, INC.-2011-RO-01676RO

PATIENT
  Age: 79 Year
  Sex: Male

DRUGS (1)
  1. METHOTREXATE [Suspect]
     Indication: RHEUMATOID ARTHRITIS

REACTIONS (3)
  - DIFFUSE LARGE B-CELL LYMPHOMA [None]
  - DIFFUSE LARGE B-CELL LYMPHOMA RECURRENT [None]
  - EPSTEIN-BARR VIRUS INFECTION [None]
